FAERS Safety Report 10320619 (Version 2)
Quarter: 2015Q1

REPORT INFORMATION
  Report Type: Other
  Country: US (occurrence: US)
  Receive Date: 20140719
  Receipt Date: 20150212
  Transmission Date: 20150720
  Serious: Yes (Hospitalization, Other)
  Sender: FDA-Public Use
  Company Number: US-GSKPPD-2014GSK036338

PATIENT
  Age: 61 Year
  Sex: Female

DRUGS (6)
  1. AVANDIA [Suspect]
     Active Substance: ROSIGLITAZONE MALEATE
     Indication: DIABETES MELLITUS
     Dosage: DATES OF AVANDIA USE COULD NOT BE CONFIRMED IN RECORDS REVIEWED.
     Route: 048
  2. FUROSEMIDE. [Concomitant]
     Active Substance: FUROSEMIDE
  3. LASIX [Concomitant]
     Active Substance: FUROSEMIDE
  4. LANOXIN [Concomitant]
     Active Substance: DIGOXIN
  5. CARVEDILOL. [Concomitant]
     Active Substance: CARVEDILOL
  6. ASPIRIN. [Concomitant]
     Active Substance: ASPIRIN

REACTIONS (2)
  - Cardiac failure congestive [Unknown]
  - Implantable defibrillator insertion [Recovered/Resolved]

NARRATIVE: CASE EVENT DATE: 20111117
